FAERS Safety Report 21117303 (Version 2)
Quarter: 2022Q4

REPORT INFORMATION
  Report Type: Report from Study
  Country: US (occurrence: US)
  Receive Date: 20220722
  Receipt Date: 20221216
  Transmission Date: 20230112
  Serious: Yes (Other)
  Sender: FDA-Public Use
  Company Number: US-UCBSA-2022039493

PATIENT
  Age: 78 Year
  Sex: Female
  Weight: 62.585 kg

DRUGS (1)
  1. BRIVARACETAM [Suspect]
     Active Substance: BRIVARACETAM
     Indication: Seizure
     Dosage: 100 MG TWICE DAILY AND ALSO 50 MG TWICE DAILY

REACTIONS (4)
  - Fall [Not Recovered/Not Resolved]
  - Hip surgery [Unknown]
  - Product use issue [Unknown]
  - Overdose [Unknown]

NARRATIVE: CASE EVENT DATE: 20220704
